FAERS Safety Report 22606619 (Version 1)
Quarter: 2023Q2

REPORT INFORMATION
  Report Type: Report from Study
  Country: BR (occurrence: BR)
  Receive Date: 20230615
  Receipt Date: 20230615
  Transmission Date: 20230721
  Serious: Yes (Other)
  Sender: FDA-Public Use
  Company Number: BR-JNJFOC-20230562018

PATIENT

DRUGS (1)
  1. CONCERTA [Suspect]
     Active Substance: METHYLPHENIDATE HYDROCHLORIDE
     Indication: Attention deficit hyperactivity disorder
     Route: 065

REACTIONS (14)
  - Epilepsy [Unknown]
  - Psychotic symptom [Unknown]
  - Gastrointestinal disorder [Unknown]
  - Headache [Unknown]
  - Weight decreased [Unknown]
  - Decreased appetite [Unknown]
  - Anxiety [Unknown]
  - Tic [Unknown]
  - Insomnia [Unknown]
  - Tachycardia [Unknown]
  - Agitation [Unknown]
  - Hypertension [Unknown]
  - Mood altered [Unknown]
  - Chest pain [Unknown]
